FAERS Safety Report 10872365 (Version 1)
Quarter: 2015Q1

REPORT INFORMATION
  Report Type: Spontaneous
  Country: US (occurrence: US)
  Receive Date: 20150226
  Receipt Date: 20150226
  Transmission Date: 20150721
  Serious: Yes (Other)
  Sender: FDA-Public Use
  Company Number: US-AMGEN-USASP2015017304

PATIENT
  Sex: Female

DRUGS (4)
  1. ENBREL [Suspect]
     Active Substance: ETANERCEPT
     Indication: PSORIASIS
     Dosage: 50 MG, QWK
     Route: 064
     Dates: start: 20090101
  2. NOVOLOG [Concomitant]
     Active Substance: INSULIN ASPART
     Dosage: UNK
     Route: 064
     Dates: start: 20050201
  3. TYLENOL [Concomitant]
     Active Substance: ACETAMINOPHEN
     Dosage: 1.25 MG, UNK
     Route: 048
     Dates: start: 20141001
  4. OXYCODONE [Concomitant]
     Active Substance: OXYCODONE
     Dosage: 5 MG, QD
     Route: 064
     Dates: start: 20141201

REACTIONS (3)
  - Waardenburg syndrome [Unknown]
  - Gastrooesophageal reflux disease [Unknown]
  - Respiratory tract congestion [Unknown]
